FAERS Safety Report 15777772 (Version 1)
Quarter: 2018Q4

REPORT INFORMATION
  Report Type: Spontaneous
  Country: US (occurrence: US)
  Receive Date: 20181231
  Receipt Date: 20181231
  Transmission Date: 20190205
  Serious: Yes (Death)
  Sender: FDA-Public Use
  Company Number: None

PATIENT
  Age: 72 Year
  Sex: Male

DRUGS (17)
  1. MECLIZINE [Concomitant]
     Active Substance: MECLIZINE HYDROCHLORIDE
     Dates: start: 20181101, end: 20181229
  2. ONDANSETRON [Concomitant]
     Active Substance: ONDANSETRON
     Dates: start: 20181105, end: 20181229
  3. OMEPRAZOLE. [Concomitant]
     Active Substance: OMEPRAZOLE
     Dates: start: 20181129, end: 20181229
  4. VENTOLIN [Concomitant]
     Active Substance: ALBUTEROL SULFATE
     Dates: start: 20181212, end: 20181229
  5. LOSARTAN. [Concomitant]
     Active Substance: LOSARTAN
     Dates: start: 20180515, end: 20181229
  6. HYDROCODONE/ACETAMINOPHEN [Concomitant]
     Active Substance: ACETAMINOPHEN\HYDROCODONE
     Dates: start: 20181027, end: 20181229
  7. BENZONATATE. [Concomitant]
     Active Substance: BENZONATATE
     Dates: start: 20180913, end: 20181229
  8. FUROSEMIDE. [Concomitant]
     Active Substance: FUROSEMIDE
     Dates: start: 20181030, end: 20181229
  9. DEXAMETHASONE. [Concomitant]
     Active Substance: DEXAMETHASONE
     Dates: start: 20181105, end: 20181229
  10. TRANSDERM SC [Concomitant]
     Dates: start: 20181108, end: 20181229
  11. FLUCONAZOLE. [Concomitant]
     Active Substance: FLUCONAZOLE
     Dates: start: 20181123, end: 20181229
  12. LIDOCAINE. [Concomitant]
     Active Substance: LIDOCAINE
     Dates: start: 20181126, end: 20181229
  13. TRAMADOL. [Concomitant]
     Active Substance: TRAMADOL
     Dates: start: 20181205, end: 20181229
  14. MORPHINE [Concomitant]
     Active Substance: MORPHINE
     Dates: start: 20181221, end: 20181229
  15. SUTENT [Suspect]
     Active Substance: SUNITINIB MALATE
     Indication: RENAL CANCER
     Route: 048
     Dates: start: 20181130, end: 20181229
  16. SUTENT [Suspect]
     Active Substance: SUNITINIB MALATE
     Indication: MALIGNANT NEOPLASM OF RENAL PELVIS
     Route: 048
     Dates: start: 20181130, end: 20181229
  17. SUCRALFATE. [Concomitant]
     Active Substance: SUCRALFATE
     Dates: start: 20181129, end: 20181229

REACTIONS (1)
  - Death [None]

NARRATIVE: CASE EVENT DATE: 20181229
